FAERS Safety Report 8770176 (Version 1)
Quarter: 2012Q4

REPORT INFORMATION
  Report Type: 
  Country: CN (occurrence: CN)
  Receive Date: 20120905
  Receipt Date: 20120905
  Transmission Date: 20130627
  Serious: Yes (Other)
  Sender: FDA-Public Use
  Company Number: CN-ASTRAZENECA-2012SE65184

PATIENT
  Age: 9232 Day
  Weight: 46 kg

DRUGS (2)
  1. PROPOFOL INJECTION [Suspect]
     Indication: PREGNANCY
     Route: 042
     Dates: start: 20110304, end: 20110304
  2. PROPOFOL INJECTION [Suspect]
     Indication: ABORTION
     Route: 042
     Dates: start: 20110304, end: 20110304

REACTIONS (5)
  - Dyspnoea [Recovered/Resolved]
  - Laryngospasm [Recovered/Resolved]
  - Rash maculo-papular [Recovered/Resolved]
  - Pruritus [Recovered/Resolved]
  - Irritability [Recovered/Resolved]
